FAERS Safety Report 5828458-1 (Version None)
Quarter: 2008Q3

REPORT INFORMATION
  Report Type: 
  Country: None (occurrence: None)
  Receive Date: 20080731
  Receipt Date: 20080710
  Transmission Date: 20090109
  Serious: Yes (Hospitalization)
  Sender: FDA-Public Use
  Company Number: US-AMGEN-KDL268936

PATIENT
  Sex: Female

DRUGS (5)
  1. NEULASTA [Suspect]
     Indication: CHEMOTHERAPY
     Route: 058
     Dates: start: 20080210
  2. DOXORUBICIN HCL [Concomitant]
     Dates: start: 20080201
  3. IFOSFAMIDE [Concomitant]
     Dates: start: 20080201
  4. FENTANYL-100 [Concomitant]
     Route: 062
  5. DILAUDID [Concomitant]

REACTIONS (8)
  - ANAEMIA [None]
  - DELIRIUM [None]
  - DRUG INEFFECTIVE [None]
  - FATIGUE [None]
  - FEBRILE NEUTROPENIA [None]
  - MALAISE [None]
  - PLATELET COUNT INCREASED [None]
  - WHITE BLOOD CELL COUNT INCREASED [None]
